FAERS Safety Report 5195536-2 (Version None)
Quarter: 2007Q1

REPORT INFORMATION
  Report Type: 
  Country: None (occurrence: None)
  Receive Date: 20070102
  Receipt Date: 20061221
  Transmission Date: 20070707
  Serious: Yes (Disabling, Other)
  Sender: FDA-Public Use
  Company Number: 2006UW26230

PATIENT
  Age: 39 Year
  Sex: Female
  Weight: 65 kg

DRUGS (10)
  1. MERREM [Suspect]
     Indication: PNEUMONIA
     Route: 042
     Dates: start: 20060910, end: 20060921
  2. MERREM [Suspect]
     Indication: URINARY TRACT INFECTION
     Route: 042
     Dates: start: 20060910, end: 20060921
  3. MERREM [Suspect]
     Route: 042
     Dates: start: 20061005, end: 20061013
  4. MERREM [Suspect]
     Route: 042
     Dates: start: 20061005, end: 20061013
  5. MERREM [Suspect]
     Route: 042
     Dates: start: 20061027, end: 20061112
  6. MERREM [Suspect]
     Route: 042
     Dates: start: 20061027, end: 20061112
  7. MERREM [Suspect]
     Route: 042
     Dates: start: 20061127, end: 20061205
  8. MERREM [Suspect]
     Route: 042
     Dates: start: 20061127, end: 20061205
  9. KEPPRA [Concomitant]
     Indication: CONVULSION
     Dates: start: 20060801
  10. VITAMINS [Concomitant]

REACTIONS (2)
  - AGNOSIA [None]
  - DEAFNESS [None]
